FAERS Safety Report 14977518 (Version 1)
Quarter: 2018Q2

REPORT INFORMATION
  Report Type: Report from Study
  Country: FR (occurrence: FR)
  Receive Date: 20180606
  Receipt Date: 20180606
  Transmission Date: 20180711
  Serious: Yes (Death, Hospitalization)
  Sender: FDA-Public Use
  Company Number: FR-TEVA-2018-FR-900016

PATIENT
  Age: 54 Year
  Sex: Female

DRUGS (6)
  1. MYCOPHENOLATE MOFETIL. [Suspect]
     Active Substance: MYCOPHENOLATE MOFETIL
     Indication: CRYOGLOBULINAEMIA
     Route: 065
  2. RITUXIMAB. [Suspect]
     Active Substance: RITUXIMAB
     Indication: CRYOGLOBULINAEMIA
     Dosage: ROUTE: INFUSION; CUMULATIVE DOSAGE TO FIRST REACTION: 9000MG BEFORE THE ONSET OF LUNG INFECTION AND
     Route: 050
  3. RITUXIMAB. [Suspect]
     Active Substance: RITUXIMAB
     Indication: HEPATITIS C
  4. TACROLIMUS. [Suspect]
     Active Substance: TACROLIMUS
     Indication: HEPATITIS C
  5. TACROLIMUS. [Suspect]
     Active Substance: TACROLIMUS
     Indication: CRYOGLOBULINAEMIA
     Route: 065
  6. MYCOPHENOLATE MOFETIL. [Suspect]
     Active Substance: MYCOPHENOLATE MOFETIL
     Indication: HEPATITIS C

REACTIONS (6)
  - Systemic candida [Fatal]
  - Klebsiella infection [Unknown]
  - Cerebral haemorrhage [Fatal]
  - Staphylococcal infection [Fatal]
  - Pseudomonas infection [Unknown]
  - Lung infection [Unknown]
